FAERS Safety Report 6277529-7 (Version None)
Quarter: 2009Q3

REPORT INFORMATION
  Report Type: 
  Country: None (occurrence: None)
  Receive Date: 20090722
  Receipt Date: 20090718
  Transmission Date: 20100115
  Serious: Yes (Other)
  Sender: FDA-Public Use
  Company Number: US-PFIZER INC-2009222628

PATIENT
  Sex: Male
  Weight: 88.45 kg

DRUGS (1)
  1. ARTHROTEC [Suspect]
     Indication: ERYTHEMA INFECTIOSUM
     Dosage: UNK
     Dates: start: 20090301, end: 20090401

REACTIONS (3)
  - HYPOAESTHESIA [None]
  - MULTIPLE SCLEROSIS [None]
  - VISION BLURRED [None]
